FAERS Safety Report 16444149 (Version 1)
Quarter: 2019Q2

REPORT INFORMATION
  Report Type: Spontaneous
  Country: HK (occurrence: HK)
  Receive Date: 20190618
  Receipt Date: 20190618
  Transmission Date: 20190711
  Serious: Yes (Hospitalization, Other)
  Sender: FDA-Public Use
  Company Number: HK-LUPIN PHARMACEUTICALS INC.-2019-03759

PATIENT
  Age: 58 Year
  Sex: Male

DRUGS (1)
  1. QUETIAPINE. [Suspect]
     Active Substance: QUETIAPINE
     Indication: BIPOLAR DISORDER
     Dosage: UNK
     Route: 065

REACTIONS (6)
  - Overdose [Unknown]
  - Confusional state [Recovering/Resolving]
  - Somnolence [Recovering/Resolving]
  - Tachycardia [Recovering/Resolving]
  - Miosis [Recovering/Resolving]
  - False positive investigation result [Recovered/Resolved]
